FAERS Safety Report 16166201 (Version 1)
Quarter: 2019Q2

REPORT INFORMATION
  Report Type: Spontaneous
  Country: IE (occurrence: IE)
  Receive Date: 20190406
  Receipt Date: 20190406
  Transmission Date: 20190711
  Serious: Yes (Other)
  Sender: FDA-Public Use
  Company Number: IE-ACCORD-119106

PATIENT
  Sex: Female

DRUGS (1)
  1. ESCITALOPRAM ACCORD [Suspect]
     Active Substance: ESCITALOPRAM OXALATE
     Indication: PRODUCT USED FOR UNKNOWN INDICATION
     Dosage: STRENGTH 5 MG
     Route: 048
     Dates: start: 2019

REACTIONS (2)
  - Product substitution issue [Unknown]
  - Hallucination [Unknown]

NARRATIVE: CASE EVENT DATE: 20190201
